FAERS Safety Report 5695706-0 (Version None)
Quarter: 2008Q2

REPORT INFORMATION
  Report Type: 
  Country: None (occurrence: None)
  Receive Date: 20080403
  Receipt Date: 20080324
  Transmission Date: 20081010
  Serious: Yes (Other)
  Sender: FDA-Public Use
  Company Number: 2008AP000726

PATIENT
  Sex: Female

DRUGS (1)
  1. PAROXETINE HCL [Suspect]
     Indication: PREMENSTRUAL SYNDROME
     Dosage: 40 MG; HS; PO, 40 MG; HS; PO
     Route: 048
     Dates: start: 20020601

REACTIONS (7)
  - ANGER [None]
  - CRYING [None]
  - DRUG WITHDRAWAL SYNDROME [None]
  - IMPAIRED WORK ABILITY [None]
  - LIBIDO DECREASED [None]
  - SOMNOLENCE [None]
  - WEIGHT INCREASED [None]
